FAERS Safety Report 14674748 (Version 1)
Quarter: 2018Q1

REPORT INFORMATION
  Report Type: Spontaneous
  Country: GB (occurrence: None)
  Receive Date: 20180314
  Receipt Date: 20180314
  Transmission Date: 20180509
  Serious: Yes (Other)
  Sender: FDA-Public Use
  Company Number: FK201506800

PATIENT
  Age: 65 Year
  Sex: Female
  Weight: 58.4 kg

DRUGS (12)
  1. FOLINIC ACID [Concomitant]
     Active Substance: LEUCOVORIN
  2. IRINOTECAN (MANUFACTURER UNKNOWN)(IRINOTECAN)(IRINOTECAN) [Suspect]
     Active Substance: IRINOTECAN
     Indication: COLORECTAL CANCER
     Dosage: 180 MG/M2, 180 MG/M2, DAY 1 OF EACH 14 DAY CYCLE, INTRAVENOUS (NOT OTHERWISE SPECIFIED)
     Route: 042
     Dates: start: 20150702
  3. METOCLOPRAMIDE. [Concomitant]
     Active Substance: METOCLOPRAMIDE
  4. CODEINE PHOSPHATE [Concomitant]
     Active Substance: CODEINE PHOSPHATE
  5. LOPERAMIDE [Concomitant]
     Active Substance: LOPERAMIDE
  6. FLUOROURACIL(FLUOROURACIL)(FLUOROURACIL) [Suspect]
     Active Substance: FLUOROURACIL
     Indication: COLORECTAL CANCER
     Dosage: 2400 MG/M2, 1 CYCLICAL, INTRAVENOUS (NOT OTHERWISE SPECIFIED)
     Route: 042
     Dates: start: 20150702
  7. GAVISCON(GAVISCON /00237601/) [Concomitant]
  8. CYCLIZINE [Concomitant]
     Active Substance: CYCLIZINE
  9. VELIPARIB(VELIPARIB)(VELIPARIB) [Suspect]
     Active Substance: VELIPARIB
     Indication: COLORECTAL CANCER
     Route: 048
     Dates: start: 20150702
  10. DEXAMETHASONE. [Concomitant]
     Active Substance: DEXAMETHASONE
  11. DIORALYTE(ORAL REHYDRATION SALT) [Concomitant]
  12. LANSOPRAZOLE. [Concomitant]
     Active Substance: LANSOPRAZOLE

REACTIONS (5)
  - Blood creatinine increased [None]
  - Hyponatraemia [None]
  - Toxicity to various agents [None]
  - Renal impairment [None]
  - Gastrointestinal stoma complication [None]
